FAERS Safety Report 20092931 (Version 1)
Quarter: 2021Q4

REPORT INFORMATION
  Report Type: Spontaneous
  Country: FR (occurrence: FR)
  Receive Date: 20211120
  Receipt Date: 20211120
  Transmission Date: 20220303
  Serious: Yes (Other)
  Sender: FDA-Public Use
  Company Number: FR-ABBVIE-21K-056-4166561-00

PATIENT
  Sex: Female

DRUGS (8)
  1. VALPROATE SODIUM [Suspect]
     Active Substance: VALPROATE SODIUM
     Indication: Product used for unknown indication
     Route: 048
  2. KARDEGIC [Suspect]
     Active Substance: ASPIRIN DL-LYSINE
     Indication: Ischaemic stroke
     Route: 048
  3. TIOTROPIUM BROMIDE [Suspect]
     Active Substance: TIOTROPIUM BROMIDE
     Indication: Chronic obstructive pulmonary disease
     Route: 055
  4. HYDROCHLOROTHIAZIDE\IRBESARTAN [Suspect]
     Active Substance: HYDROCHLOROTHIAZIDE\IRBESARTAN
     Indication: Hypertension
     Route: 048
  5. MONTELUKAST [Suspect]
     Active Substance: MONTELUKAST SODIUM
     Indication: Asthma
     Route: 048
     Dates: end: 20190228
  6. FUROSEMIDE [Suspect]
     Active Substance: FUROSEMIDE
     Indication: Hypertension
     Route: 048
  7. PANTOPRAZOLE [Suspect]
     Active Substance: PANTOPRAZOLE
     Indication: Gastrooesophageal reflux disease
     Route: 048
  8. NICARDIPINE HYDROCHLORIDE [Suspect]
     Active Substance: NICARDIPINE HYDROCHLORIDE
     Indication: Hypertension
     Route: 048

REACTIONS (1)
  - Delirium [Recovered/Resolved]

NARRATIVE: CASE EVENT DATE: 20191201
